FAERS Safety Report 4554456-4 (Version None)
Quarter: 2004Q4

REPORT INFORMATION
  Report Type: 
  Country: None (occurrence: None)
  Receive Date: 20041221
  Receipt Date: 20031118
  Transmission Date: 20050328
  Serious: Yes (Other)
  Sender: FDA-Public Use
  Company Number: 200318972US

PATIENT
  Age: 71 Year
  Sex: Female

DRUGS (1)
  1. FLUOROURACIL [Suspect]
     Indication: ACTINIC KERATOSIS
     Dosage: QD
     Dates: start: 20021016, end: 20021104

REACTIONS (6)
  - CAUSTIC INJURY [None]
  - ERYTHEMA [None]
  - FACIAL PAIN [None]
  - SCAB [None]
  - SWELLING [None]
  - WOUND SECRETION [None]
